FAERS Safety Report 4365754-1 (Version None)
Quarter: 2004Q2

REPORT INFORMATION
  Report Type: 
  Country: None (occurrence: None)
  Receive Date: 20040527
  Receipt Date: 20040514
  Transmission Date: 20050107
  Serious: Yes (Disabling)
  Sender: FDA-Public Use
  Company Number: 200411982FR

PATIENT
  Age: 69 Year
  Sex: Female

DRUGS (2)
  1. TAXOTERE [Suspect]
     Indication: BREAST CANCER
     Route: 042
     Dates: start: 20040223, end: 20040223
  2. NEULASTA [Suspect]
     Dates: start: 20040223, end: 20040223

REACTIONS (4)
  - OCULAR TOXICITY [None]
  - OTITIS MEDIA [None]
  - PALMAR-PLANTAR ERYTHRODYSAESTHESIA SYNDROME [None]
  - POSTNASAL DRIP [None]
